FAERS Safety Report 10014029 (Version 2)
Quarter: 2014Q1

REPORT INFORMATION
  Report Type: Spontaneous
  Country: IT (occurrence: IT)
  Receive Date: 20140317
  Receipt Date: 20140319
  Transmission Date: 20141002
  Serious: Yes (Other)
  Sender: FDA-Public Use
  Company Number: IT-ROCHE-1365101

PATIENT
  Age: 59 Year
  Sex: Male
  Weight: 75 kg

DRUGS (4)
  1. PEGASYS [Suspect]
     Indication: ANTIVIRAL TREATMENT
     Route: 058
     Dates: start: 20131018, end: 20140225
  2. COPEGUS [Interacting]
     Indication: ANTIVIRAL TREATMENT
     Dosage: 6 TABLETS PER DAY
     Route: 048
     Dates: start: 20131018, end: 20131118
  3. COPEGUS [Interacting]
     Dosage: 3 TABLETS PER DAY
     Route: 048
     Dates: start: 20131118, end: 20140225
  4. VICTRELIS [Interacting]
     Indication: ANTIVIRAL TREATMENT
     Route: 048
     Dates: start: 20131118, end: 20140225

REACTIONS (3)
  - Drug interaction [Unknown]
  - Pancytopenia [Recovering/Resolving]
  - Immunosuppressant drug level increased [Recovered/Resolved]
